FAERS Safety Report 4362299-X (Version None)
Quarter: 2004Q2

REPORT INFORMATION
  Report Type: 
  Country: None (occurrence: None)
  Receive Date: 20040517
  Receipt Date: 20040504
  Transmission Date: 20050107
  Serious: Yes (Death)
  Sender: FDA-Public Use
  Company Number: 04P-013-0255936-00

PATIENT
  Age: 77 Year
  Sex: Male

DRUGS (1)
  1. DEPAKENE [Suspect]
     Indication: EPILEPSY

REACTIONS (8)
  - CEREBRAL VENTRICLE DILATATION [None]
  - CEREBROVASCULAR STENOSIS [None]
  - DEPRESSED LEVEL OF CONSCIOUSNESS [None]
  - DRUG INEFFECTIVE [None]
  - MULTI-ORGAN FAILURE [None]
  - RESPIRATORY TRACT INFECTION [None]
  - SEPSIS [None]
  - STATUS EPILEPTICUS [None]
